FAERS Safety Report 12725697 (Version 1)
Quarter: 2016Q3

REPORT INFORMATION
  Report Type: Report from Study
  Country: JP (occurrence: JP)
  Receive Date: 20160908
  Receipt Date: 20160908
  Transmission Date: 20161109
  Serious: Yes (Other)
  Sender: FDA-Public Use
  Company Number: JP-FERRINGPH-2014FE03217

PATIENT

DRUGS (12)
  1. DEGARELIX [Suspect]
     Active Substance: DEGARELIX
     Dosage: 240 MG, ONCE/SINGLE
     Route: 058
     Dates: start: 20130628, end: 20130628
  2. CASODEX [Concomitant]
     Active Substance: BICALUTAMIDE
     Route: 048
     Dates: start: 20130628
  3. DEGARELIX [Suspect]
     Active Substance: DEGARELIX
     Indication: PROSTATE CANCER METASTATIC
     Dosage: 80 MG, MONTHLY
     Route: 058
     Dates: start: 20130726, end: 20140606
  4. DECADRON [Concomitant]
     Active Substance: DEXAMETHASONE
     Route: 048
     Dates: start: 20140111
  5. PRIMPERAN [Concomitant]
     Active Substance: METOCLOPRAMIDE HYDROCHLORIDE
     Indication: NAUSEA
     Dosage: 10 MG, DAILY
     Dates: start: 20131213, end: 20140606
  6. LANTUS [Concomitant]
     Active Substance: INSULIN GLARGINE
     Indication: DIABETES MELLITUS
     Dosage: 10 U, DAILY
     Dates: start: 20140131
  7. PREDNIN [Suspect]
     Active Substance: PREDNISOLONE SODIUM PHOSPHATE
     Indication: PROSTATE CANCER METASTATIC
     Dosage: 10 MG, 1 TIME DAILY
     Route: 048
     Dates: start: 20130926, end: 20140110
  8. TAKEPRON [Concomitant]
     Active Substance: LANSOPRAZOLE
     Dates: start: 20131003
  9. ONETAXOTERE [Concomitant]
     Active Substance: DOCETAXEL
     Dates: start: 20130926, end: 20140620
  10. ZOMETA [Concomitant]
     Active Substance: ZOLEDRONIC ACID
     Dates: start: 20130628, end: 20140131
  11. RANMARK [Concomitant]
     Active Substance: DENOSUMAB
     Dates: start: 20140314
  12. HUMALOG [Concomitant]
     Active Substance: INSULIN LISPRO
     Indication: DIABETES MELLITUS
     Dosage: 20 U, DAILY
     Dates: start: 20140214

REACTIONS (3)
  - Diabetes mellitus [Not Recovered/Not Resolved]
  - Nausea [Recovering/Resolving]
  - Cancer pain [Not Recovered/Not Resolved]

NARRATIVE: CASE EVENT DATE: 20131213
